FAERS Safety Report 6245393-8 (Version None)
Quarter: 2009Q2

REPORT INFORMATION
  Report Type: 
  Country: None (occurrence: None)
  Receive Date: 20090622
  Receipt Date: 20080617
  Transmission Date: 20091009
  Serious: Yes (Other)
  Sender: FDA-Public Use
  Company Number: WWISSUE-191

PATIENT
  Sex: Female

DRUGS (4)
  1. BUTALBITAL, APAP,CAFFEINE TABS, 50/325/40 MG, WW [Suspect]
     Indication: MIGRAINE
     Dosage: ORAL
     Route: 048
     Dates: start: 20080609
  2. BUTALBITAL, APAP,CAFFEINE TABS, 50/325/40 MG, WW [Suspect]
     Indication: STRESS
     Dosage: ORAL
     Route: 048
     Dates: start: 20080609
  3. HEPARIN [Concomitant]
  4. FIORICET [Concomitant]

REACTIONS (1)
  - HYPERSENSITIVITY [None]
